FAERS Safety Report 7225790-4 (Version None)
Quarter: 2011Q1

REPORT INFORMATION
  Report Type: 
  Country: None (occurrence: None)
  Receive Date: 20110110
  Receipt Date: 20110110
  Transmission Date: 20110831
  Serious: Yes (Other)
  Sender: FDA-Public Use
  Company Number: None

PATIENT
  Sex: Male
  Weight: 77.1115 kg

DRUGS (1)
  1. ADVAIR DISKUS 250/50 [Suspect]
     Indication: ASTHMA EXERCISE INDUCED
     Dosage: 1 PUFF /DAY ONCE EVERY DAY
     Dates: start: 20101101, end: 20101231

REACTIONS (1)
  - EPISTAXIS [None]
